FAERS Safety Report 8957236 (Version 1)
Quarter: 2012Q4

REPORT INFORMATION
  Report Type: Report from Study
  Country: AU (occurrence: AU)
  Receive Date: 20121211
  Receipt Date: 20121211
  Transmission Date: 20130627
  Serious: Yes (Hospitalization)
  Sender: FDA-Public Use
  Company Number: AU-TEVA-375206USA

PATIENT
  Age: 45 Year
  Sex: Male
  Weight: 85.4 kg

DRUGS (6)
  1. BENDAMUSTINE [Suspect]
     Indication: B-CELL LYMPHOMA
     Dosage: UID/QD
     Route: 042
     Dates: start: 20110817
  2. SULFAMETHOXAZOLE W/TRIMETHOPRIM [Concomitant]
     Dates: start: 20110817
  3. ALLOPURINOL [Concomitant]
     Dates: start: 20110816
  4. ONDANSETRON [Concomitant]
     Dates: start: 20110817, end: 20110819
  5. METOCLOPRAMIDE [Concomitant]
     Dates: start: 20110816
  6. FAMCICLOVIR [Concomitant]
     Dates: start: 20110817

REACTIONS (5)
  - Hypophosphataemia [Unknown]
  - Nausea [Recovered/Resolved]
  - Vomiting [Recovered/Resolved]
  - Dehydration [Recovered/Resolved]
  - Hypokalaemia [Recovered/Resolved]
